FAERS Safety Report 7864882 (Version 2)
Quarter: 2014Q1

REPORT INFORMATION
  Report Type: Spontaneous
  Country: GB (occurrence: GB)
  Receive Date: 20110321
  Receipt Date: 20140115
  Transmission Date: 20141002
  Serious: Yes (Other)
  Sender: FDA-Public Use
  Company Number: PHHY2011GB19856

PATIENT
  Age: 67 Year
  Sex: Female

DRUGS (4)
  1. RIBAVIRIN [Suspect]
     Indication: HEPATITIS C
  2. PEGYLATED INTERFERON ALFA-2A [Suspect]
     Indication: HEPATITIS C
  3. BENDROFLUMETHIAZIDE [Concomitant]
     Indication: HYPERTENSION
  4. CARBIMAZOLE [Concomitant]
     Indication: HYPERTHYROIDISM

REACTIONS (15)
  - Sarcoidosis [Recovered/Resolved]
  - Dacryoadenitis acquired [Recovered/Resolved]
  - Eyelid oedema [Recovered/Resolved]
  - Eye irritation [Recovered/Resolved]
  - Arthralgia [Recovered/Resolved]
  - Night sweats [Recovered/Resolved]
  - Rash [Recovered/Resolved]
  - Tenderness [Recovered/Resolved]
  - Corneal scar [Recovered/Resolved]
  - Lacrimal gland enlargement [Recovered/Resolved]
  - Corneal infiltrates [Recovered/Resolved]
  - Angiotensin converting enzyme increased [Unknown]
  - Aspartate aminotransferase increased [Unknown]
  - Gamma-glutamyltransferase increased [Unknown]
  - Erythema nodosum [Recovered/Resolved]
